FAERS Safety Report 6151308-3 (Version None)
Quarter: 2009Q2

REPORT INFORMATION
  Report Type: 
  Country: None (occurrence: None)
  Receive Date: 20090410
  Receipt Date: 20090401
  Transmission Date: 20091009
  Serious: Yes (Hospitalization, Other)
  Sender: FDA-Public Use
  Company Number: PHHO2006BR01800

PATIENT
  Sex: Male

DRUGS (11)
  1. CYCLOSPORINE [Suspect]
     Indication: RENAL TRANSPLANT
     Dosage: 87.5 MG, BID
     Route: 048
     Dates: start: 20030327, end: 20030805
  2. CYCLOSPORINE [Suspect]
     Dosage: 175 MG, BID
     Route: 048
     Dates: start: 20030927
  3. PREDNISONE [Suspect]
     Indication: RENAL TRANSPLANT
     Dosage: 45 MG, QD
     Route: 048
     Dates: start: 20030327
  4. METHYLPREDNISOLONE 4MG TAB [Suspect]
     Indication: RENAL TRANSPLANT
     Dosage: 1 G, PER DAY
     Route: 042
     Dates: start: 20030927
  5. MYCOPHENOLATE MOFETIL [Concomitant]
     Indication: RENAL TRANSPLANT
     Dosage: 1 G, TID
     Route: 048
     Dates: start: 20030327
  6. MYCOPHENOLATE MOFETIL [Concomitant]
     Dosage: 1 G, BID
     Route: 048
     Dates: start: 20030927
  7. GANCICLOVIR [Concomitant]
     Dates: start: 20030327, end: 20031004
  8. NIFEDIPINE [Concomitant]
     Dates: start: 20030323
  9. CEFAZOLIN AND DEXTROSE [Concomitant]
  10. CEPHALEXIN [Concomitant]
  11. CEPHALOTIN [Concomitant]

REACTIONS (6)
  - BIOPSY KIDNEY [None]
  - COMPLICATIONS OF TRANSPLANTED KIDNEY [None]
  - NEPHRECTOMY [None]
  - NEPHROPATHY TOXIC [None]
  - RENAL CORTICAL NECROSIS [None]
  - THROMBOSIS [None]
